FAERS Safety Report 20377166 (Version 4)
Quarter: 2022Q2

REPORT INFORMATION
  Report Type: Report from Study
  Country: AR (occurrence: AR)
  Receive Date: 20220125
  Receipt Date: 20220602
  Transmission Date: 20220721
  Serious: Yes (Hospitalization)
  Sender: FDA-Public Use
  Company Number: AR-JNJFOC-20220119143

PATIENT
  Age: 81 Year
  Sex: Female
  Weight: 65 kg

DRUGS (11)
  1. AMIVANTAMAB [Suspect]
     Active Substance: AMIVANTAMAB
     Indication: Non-small cell lung cancer metastatic
     Dosage: MOST RECENT DOSE OF AMIVANTAMAB WAS ADMINISTERED ON 29-DEC-2021, DOSE ALSO REPORTED AS 250 ML
     Route: 042
     Dates: start: 20210727
  2. ESOMEPRAZOLE [Concomitant]
     Active Substance: ESOMEPRAZOLE
     Indication: Hiatus hernia
     Route: 048
     Dates: start: 2021
  3. CLONAZEPAM [Concomitant]
     Active Substance: CLONAZEPAM
     Indication: Prophylaxis
     Route: 048
     Dates: start: 2021
  4. POLYVINYL ALCOHOL [Concomitant]
     Active Substance: POLYVINYL ALCOHOL
     Indication: Conjunctivitis allergic
     Route: 047
     Dates: start: 20210806
  5. POLYVINYL ALCOHOL [Concomitant]
     Active Substance: POLYVINYL ALCOHOL
     Indication: Conjunctivitis
  6. LIDOCAINE [Concomitant]
     Active Substance: LIDOCAINE
     Indication: Stomatitis
     Route: 048
     Dates: start: 20210810
  7. IODOPOVIDONE DEGASA [Concomitant]
     Indication: Paronychia
     Route: 061
     Dates: start: 20211022
  8. MINOCICLINA [MINOCYCLINE] [Concomitant]
     Indication: Rash
     Route: 048
     Dates: start: 20211031
  9. VITAMIN B5 [PANTOTHENIC ACID] [Concomitant]
     Indication: Rash
     Route: 061
     Dates: start: 20211102
  10. DAFLON [BIOFLAVONOIDS NOS;DIOSMIN;HESPERIDIN] [Concomitant]
     Indication: Haemorrhoidal haemorrhage
     Route: 048
     Dates: start: 20211201
  11. DAFLON [BIOFLAVONOIDS NOS;DIOSMIN;HESPERIDIN] [Concomitant]
     Route: 048
     Dates: start: 20211030

REACTIONS (2)
  - Embolism [Recovering/Resolving]
  - Pneumonia [Recovering/Resolving]

NARRATIVE: CASE EVENT DATE: 20220109
